FAERS Safety Report 17307700 (Version 1)
Quarter: 2020Q1

REPORT INFORMATION
  Report Type: Spontaneous
  Country: US (occurrence: US)
  Receive Date: 20200123
  Receipt Date: 20200123
  Transmission Date: 20200409
  Serious: No
  Sender: FDA-Public Use
  Company Number: US-SHIRE-US202002277

PATIENT
  Sex: Male
  Weight: 84.81 kg

DRUGS (2)
  1. XIIDRA [Suspect]
     Active Substance: LIFITEGRAST
     Indication: DRY EYE
     Dosage: UNK UNK, 2X/DAY:BID
     Route: 047
     Dates: start: 20200117
  2. XIIDRA [Suspect]
     Active Substance: LIFITEGRAST
     Indication: VISION BLURRED

REACTIONS (2)
  - Eye irritation [Recovered/Resolved]
  - Dysgeusia [Recovered/Resolved]
